FAERS Safety Report 6596203-0 (Version None)
Quarter: 2010Q1

REPORT INFORMATION
  Report Type: 
  Country: None (occurrence: None)
  Receive Date: 20100219
  Receipt Date: 20100219
  Transmission Date: 20100710
  Serious: No
  Sender: FDA-Public Use
  Company Number: None

PATIENT
  Sex: Female
  Weight: 90 kg

DRUGS (11)
  1. CYCLOPHOSPHAMIDE [Suspect]
     Dosage: 1500 MG
  2. DOXIL [Suspect]
     Dosage: 80 MG
  3. PREDNISONE [Suspect]
     Dosage: 500 MG
  4. RITUXIMAB (MOAB C2B8 ANTI CD20, CHIMERIC) [Suspect]
     Dosage: 500 MG
  5. VINCRISTINE SULFATE [Suspect]
     Dosage: 2 MG
  6. ATRIPLA [Concomitant]
  7. AZITHROMYC [Concomitant]
  8. BACTRIM DS [Concomitant]
  9. CIPROFLOXACIN [Concomitant]
  10. FLUCONAZOLE [Concomitant]
  11. NEULASTA [Concomitant]

REACTIONS (3)
  - LYMPHOMA [None]
  - MALIGNANT NEOPLASM PROGRESSION [None]
  - NEUTROPHIL COUNT DECREASED [None]
